FAERS Safety Report 6659853-9 (Version None)
Quarter: 2010Q1

REPORT INFORMATION
  Report Type: 
  Country: None (occurrence: None)
  Receive Date: 20100330
  Receipt Date: 20100330
  Transmission Date: 20100710
  Serious: Yes (Death)
  Sender: FDA-Public Use
  Company Number: None

PATIENT
  Age: 60 Year
  Sex: Female

DRUGS (9)
  1. REVLIMID [Suspect]
     Indication: MULTIPLE MYELOMA
     Dosage: 15MG DAILY ORALLY
     Route: 048
     Dates: start: 20090930, end: 20091023
  2. FAMOTIDINE [Concomitant]
  3. METOCLOPRAMIDE [Concomitant]
  4. LISINOPRIL [Concomitant]
  5. COMBIVENT NEBULIZER [Concomitant]
  6. FUROSEMIDE [Concomitant]
  7. SIMVASTATIN [Concomitant]
  8. AMITRIPTYLINE HCL [Concomitant]
  9. NIACIN [Concomitant]

REACTIONS (1)
  - NO ADVERSE EVENT [None]
